FAERS Safety Report 4337623-4 (Version None)
Quarter: 2004Q2

REPORT INFORMATION
  Report Type: 
  Country: None (occurrence: None)
  Receive Date: 20040413
  Receipt Date: 20031007
  Transmission Date: 20050107
  Serious: No
  Sender: FDA-Public Use
  Company Number: US-GLAXOSMITHKLINE-A0429263A

PATIENT
  Sex: Female

DRUGS (1)
  1. DEXEDRINE [Suspect]
     Route: 048

REACTIONS (2)
  - BLADDER DISORDER [None]
  - INTESTINAL FUNCTIONAL DISORDER [None]
